FAERS Safety Report 13737657 (Version 1)
Quarter: 2017Q3

REPORT INFORMATION
  Report Type: Report from Study
  Country: US (occurrence: US)
  Receive Date: 20170710
  Receipt Date: 20170710
  Transmission Date: 20171127
  Serious: Yes (Death)
  Sender: FDA-Public Use
  Company Number: US-SAOL THERAPEUTICS-2016SAO00355

PATIENT
  Sex: Male

DRUGS (8)
  1. SUFENTANIL [Suspect]
     Active Substance: SUFENTANIL
     Dosage: 19.999 ?G, \DAY
     Dates: start: 20140214
  2. BACLOFEN. [Suspect]
     Active Substance: BACLOFEN
     Indication: PAIN
     Dosage: 4.89 ?G, \DAY
     Route: 037
     Dates: start: 20140204, end: 20140213
  3. BUPIVACAINE. [Suspect]
     Active Substance: BUPIVACAINE
     Dosage: 2.665 MG, \DAY
     Dates: start: 20140214
  4. SUFENTANIL [Suspect]
     Active Substance: SUFENTANIL
     Dosage: 10.99 ?G, \DAY
     Route: 037
     Dates: start: 20140204, end: 20140213
  5. DROPERIDOL. [Suspect]
     Active Substance: DROPERIDOL
     Dosage: 14.66 ?G, \DAY
     Route: 037
     Dates: start: 20140204, end: 20140213
  6. DROPERIDOL. [Suspect]
     Active Substance: DROPERIDOL
     Dosage: 26.65 ?G, \DAY
     Dates: start: 20140214
  7. BACLOFEN. [Suspect]
     Active Substance: BACLOFEN
     Dosage: 8.88 ?G, \DAY
     Dates: start: 20140214
  8. BUPIVACAINE. [Suspect]
     Active Substance: BUPIVACAINE
     Dosage: 1.466 MG \DAY
     Route: 037
     Dates: start: 20140204, end: 20140213

REACTIONS (1)
  - Death [Fatal]
